FAERS Safety Report 5088924-6 (Version None)
Quarter: 2006Q3

REPORT INFORMATION
  Report Type: 
  Country: None (occurrence: None)
  Receive Date: 20060825
  Receipt Date: 20060817
  Transmission Date: 20061208
  Serious: Yes (Life-Threatening)
  Sender: FDA-Public Use
  Company Number: FR-JNJFOC-20060701681

PATIENT
  Sex: Male

DRUGS (7)
  1. EPITOMAX [Suspect]
     Indication: EPILEPSY
     Route: 048
  2. PREVISCAN [Interacting]
     Route: 065
  3. PREVISCAN [Interacting]
     Indication: PHLEBITIS
     Route: 065
  4. PRAVASTATIN [Concomitant]
     Indication: HYPERCHOLESTEROLAEMIA
     Route: 065
  5. ASPIRIN [Concomitant]
     Route: 065
  6. ISOPTIN [Concomitant]
     Indication: HYPERTENSION
     Route: 065
  7. COVERSYL [Concomitant]
     Indication: HYPERTENSION
     Route: 065

REACTIONS (2)
  - DRUG INTERACTION [None]
  - INTERNATIONAL NORMALISED RATIO DECREASED [None]
